FAERS Safety Report 7276363-9 (Version None)
Quarter: 2011Q1

REPORT INFORMATION
  Report Type: 
  Country: None (occurrence: None)
  Receive Date: 20110204
  Receipt Date: 20110126
  Transmission Date: 20110831
  Serious: Yes (Life-Threatening, Hospitalization)
  Sender: FDA-Public Use
  Company Number: US-EISAI INC-E7389-01131-CLI-US

PATIENT
  Sex: Female
  Weight: 81 kg

DRUGS (2)
  1. E7389 (BOLD) [Suspect]
     Indication: LUNG CANCER METASTATIC
     Dosage: UNKNOWN
     Route: 041
     Dates: start: 20101008
  2. ERLOTINIB [Concomitant]
     Dosage: UNKNOWN
     Route: 048
     Dates: start: 20101022

REACTIONS (1)
  - ACUTE RESPIRATORY FAILURE [None]
